FAERS Safety Report 9807836 (Version 1)
Quarter: 2014Q1

REPORT INFORMATION
  Report Type: Spontaneous
  Country: FR (occurrence: FR)
  Receive Date: 20140110
  Receipt Date: 20140110
  Transmission Date: 20141002
  Serious: Yes (Hospitalization)
  Sender: FDA-Public Use
  Company Number: FR-TEVA-454326ISR

PATIENT
  Age: 45 Year
  Sex: Female

DRUGS (1)
  1. COPAXONE [Suspect]
     Dates: start: 20131128

REACTIONS (2)
  - Intestinal obstruction [Recovering/Resolving]
  - Faecal vomiting [Recovered/Resolved]
